FAERS Safety Report 13827852 (Version 1)
Quarter: 2017Q3

REPORT INFORMATION
  Report Type: Spontaneous
  Country: US (occurrence: US)
  Receive Date: 20170803
  Receipt Date: 20170803
  Transmission Date: 20171127
  Serious: Yes (Other)
  Sender: FDA-Public Use
  Company Number: US-AMGEN-USASP2017114035

PATIENT
  Age: 63 Year
  Sex: Female

DRUGS (2)
  1. NEUPOGEN [Suspect]
     Active Substance: FILGRASTIM
     Indication: PRODUCT USED FOR UNKNOWN INDICATION
     Dosage: 480 MG, QD
     Route: 058
     Dates: start: 20170721
  2. CARBOPLATIN TAXOL [Concomitant]
     Active Substance: CARBOPLATIN\PACLITAXEL
     Indication: OVARIAN CANCER
     Dosage: UNK (DAY 1 OF A 21 DAY CYCLE)
     Dates: start: 20170720

REACTIONS (1)
  - White blood cell count decreased [Not Recovered/Not Resolved]

NARRATIVE: CASE EVENT DATE: 20170722
